FAERS Safety Report 13234672 (Version 2)
Quarter: 2017Q1

REPORT INFORMATION
  Report Type: Report from Study
  Country: NL (occurrence: NL)
  Receive Date: 20170215
  Receipt Date: 20170324
  Transmission Date: 20170428
  Serious: Yes (Hospitalization, Other)
  Sender: FDA-Public Use
  Company Number: NL-AMGEN-NLDSL2017022147

PATIENT
  Age: 86 Year
  Sex: Female

DRUGS (1)
  1. ARANESP [Suspect]
     Active Substance: DARBEPOETIN ALFA
     Indication: NEPHROGENIC ANAEMIA
     Dosage: 60 MCG (IN 0.3ML AS 200 MCG/ML), Q2WK
     Route: 058

REACTIONS (2)
  - Disease progression [Not Recovered/Not Resolved]
  - Sense of oppression [Unknown]

NARRATIVE: CASE EVENT DATE: 20170205
